FAERS Safety Report 5847977-5 (Version None)
Quarter: 2008Q3

REPORT INFORMATION
  Report Type: 
  Country: None (occurrence: None)
  Receive Date: 20080818
  Receipt Date: 20080807
  Transmission Date: 20090109
  Serious: Yes (Hospitalization, Other)
  Sender: FDA-Public Use
  Company Number: US-BAYER-200813277BCC

PATIENT
  Age: 62 Year
  Sex: Male
  Weight: 104 kg

DRUGS (10)
  1. ASPIRIN [Suspect]
     Indication: CARDIOVASCULAR EVENT PROPHYLAXIS
     Dosage: TOTAL DAILY DOSE: 325 MG  UNIT DOSE: 325 MG
     Route: 048
  2. JANUVIA [Concomitant]
     Indication: DIABETES MELLITUS
     Dates: start: 20070101
  3. PLAVIX [Concomitant]
  4. AVAPRO [Concomitant]
  5. CLONIDINE [Concomitant]
  6. TRICOR [Concomitant]
  7. LIPITOR [Concomitant]
  8. FISH OIL [Concomitant]
  9. WALGREEN'S MULTIVITAMINS [Concomitant]
  10. PROCARDIA [Concomitant]

REACTIONS (6)
  - BLOOD GLUCOSE INCREASED [None]
  - CARDIAC DISORDER [None]
  - DIABETES MELLITUS [None]
  - HYPERHIDROSIS [None]
  - MYOCARDIAL INFARCTION [None]
  - NAUSEA [None]
